APPROVED DRUG PRODUCT: MECLIZINE HYDROCHLORIDE
Active Ingredient: MECLIZINE HYDROCHLORIDE
Strength: 25MG
Dosage Form/Route: TABLET;ORAL
Application: A089114 | Product #001
Applicant: SUPERPHARM CORP
Approved: Aug 20, 1985 | RLD: No | RS: No | Type: DISCN